APPROVED DRUG PRODUCT: DIMETHYL FUMARATE
Active Ingredient: DIMETHYL FUMARATE
Strength: 240MG
Dosage Form/Route: CAPSULE, DELAYED RELEASE;ORAL
Application: A210385 | Product #002 | TE Code: AB
Applicant: AUROBINDO PHARMA LTD
Approved: Dec 22, 2022 | RLD: No | RS: No | Type: RX